FAERS Safety Report 5802482-7 (Version None)
Quarter: 2008Q2

REPORT INFORMATION
  Report Type: 
  Country: None (occurrence: None)
  Receive Date: 20080626
  Receipt Date: 20080613
  Transmission Date: 20081010
  Serious: Yes (Hospitalization)
  Sender: FDA-Public Use
  Company Number: WSDF_00219

PATIENT
  Age: 87 Year
  Sex: Male
  Weight: 82.5547 kg

DRUGS (13)
  1. WINRHO SDF [Suspect]
     Indication: IDIOPATHIC THROMBOCYTOPENIC PURPURA
     Dosage: 49.3 UG/KG ONCE
     Dates: start: 20010416, end: 20010416
  2. WINRHO SDF [Suspect]
     Indication: IDIOPATHIC THROMBOCYTOPENIC PURPURA
     Dosage: 49.3 UG/KG ONCE
     Dates: start: 20010419, end: 20010419
  3. ASPIRIN [Concomitant]
  4. ALEVE [Concomitant]
  5. INDERAL LA [Concomitant]
  6. MYCELEX [Concomitant]
  7. VASOTEC [Concomitant]
  8. NITROGLYCERIN [Concomitant]
  9. XALATAN [Concomitant]
  10. PRECASIN [Concomitant]
  11. TIMTAL [Concomitant]
  12. PNEUMOVAX 23 [Concomitant]
  13. ATIVAN [Concomitant]

REACTIONS (5)
  - ASTHENIA [None]
  - HAEMOGLOBIN DECREASED [None]
  - IDIOPATHIC THROMBOCYTOPENIC PURPURA [None]
  - INTRAVASCULAR HAEMOLYSIS [None]
  - PLATELET MORPHOLOGY ABNORMAL [None]
